FAERS Safety Report 9676454 (Version 1)
Quarter: 2013Q4

REPORT INFORMATION
  Report Type: Spontaneous
  Country: US (occurrence: US)
  Receive Date: 20131107
  Receipt Date: 20131107
  Transmission Date: 20140711
  Serious: No
  Sender: FDA-Public Use
  Company Number: US-PFIZER INC-2013313774

PATIENT
  Sex: Female

DRUGS (1)
  1. ADVIL [Suspect]
     Indication: BACK DISORDER
     Dosage: UNK, AS NEEDED
     Route: 048

REACTIONS (1)
  - Lip swelling [Not Recovered/Not Resolved]
